FAERS Safety Report 16318540 (Version 1)
Quarter: 2019Q2

REPORT INFORMATION
  Report Type: Spontaneous
  Country: US (occurrence: US)
  Receive Date: 20190516
  Receipt Date: 20190516
  Transmission Date: 20190711
  Serious: No
  Sender: FDA-Public Use
  Company Number: US-GLENMARK PHARMACEUTICALS-2019GMK039435

PATIENT

DRUGS (4)
  1. LIDOCAINE. [Concomitant]
     Active Substance: LIDOCAINE
     Indication: BACK PAIN
     Dosage: UNK (APPILED ON HIS BACK)
     Route: 061
  2. CALCIPOTRIENE CREAM 0.005% [Suspect]
     Active Substance: CALCIPOTRIENE
     Indication: DERMATITIS ALLERGIC
     Dosage: UNK, BID
     Route: 061
  3. LIDOCAINE. [Concomitant]
     Active Substance: LIDOCAINE
     Indication: ABDOMINAL PAIN UPPER
  4. FENTANYL. [Concomitant]
     Active Substance: FENTANYL
     Indication: PAIN
     Dosage: UNK
     Route: 065

REACTIONS (3)
  - Dermatitis allergic [Recovered/Resolved]
  - Drug effective for unapproved indication [Unknown]
  - Disease recurrence [Recovered/Resolved]
